FAERS Safety Report 9465717 (Version 2)
Quarter: 2013Q3

REPORT INFORMATION
  Report Type: Spontaneous
  Country: US (occurrence: US)
  Receive Date: 20130820
  Receipt Date: 20130923
  Transmission Date: 20140515
  Serious: Yes (Hospitalization, Other)
  Sender: FDA-Public Use
  Company Number: US-JNJFOC-20130807737

PATIENT
  Age: 68 Year
  Sex: Female
  Weight: 77.11 kg

DRUGS (11)
  1. REMICADE [Suspect]
     Indication: PSORIASIS
     Route: 042
  2. REMICADE [Suspect]
     Indication: PSORIASIS
     Route: 042
     Dates: start: 20070602
  3. REMICADE [Suspect]
     Indication: PSORIASIS
     Dosage: FREQUENCY CONFLICTINGLY REPORTED AS 8 WEEKS.
     Route: 042
     Dates: start: 20130514
  4. VALIUM [Concomitant]
     Route: 065
  5. VIMPAT [Concomitant]
     Route: 065
  6. PROMETHAZINE [Concomitant]
     Route: 065
  7. CLOBETASOL [Concomitant]
     Dosage: INTERVAL: ALSO AS NECESSARY
     Route: 061
  8. HALOBETASOL PROPIONATE [Concomitant]
     Route: 061
  9. PROTOPIC [Concomitant]
     Route: 065
  10. LOCOID [Concomitant]
     Route: 065
  11. METHOTREXATE [Concomitant]
     Route: 065

REACTIONS (7)
  - B-cell lymphoma [Not Recovered/Not Resolved]
  - Hypercalcaemia [Not Recovered/Not Resolved]
  - Renal failure chronic [Not Recovered/Not Resolved]
  - Urinary tract infection [Not Recovered/Not Resolved]
  - Drug eruption [Not Recovered/Not Resolved]
  - Hypoxia [Not Recovered/Not Resolved]
  - Mental status changes [Not Recovered/Not Resolved]
